FAERS Safety Report 8240171-2 (Version None)
Quarter: 2012Q1

REPORT INFORMATION
  Report Type: 
  Country: None (occurrence: None)
  Receive Date: 20120328
  Receipt Date: 20111007
  Transmission Date: 20120608
  Serious: No
  Sender: FDA-Public Use
  Company Number: US-PFIZER INC-2011251747

PATIENT
  Sex: Female
  Weight: 65.306 kg

DRUGS (1)
  1. OXYCODONE HYDROCHLORIDE [Suspect]

REACTIONS (2)
  - CONFUSIONAL STATE [None]
  - DRUG HYPERSENSITIVITY [None]
